FAERS Safety Report 9772530 (Version 2)
Quarter: 2014Q1

REPORT INFORMATION
  Report Type: Spontaneous
  Country: US (occurrence: None)
  Receive Date: 20131218
  Receipt Date: 20140318
  Transmission Date: 20141002
  Serious: Yes (Other)
  Sender: FDA-Public Use
  Company Number: 2013CT000096

PATIENT
  Age: 86 Year
  Sex: Female
  Weight: 67.13 kg

DRUGS (2)
  1. KORLYM [Suspect]
     Indication: PITUITARY-DEPENDENT CUSHING^S SYNDROME
     Route: 048
     Dates: start: 20131024
  2. KETOCONAZOLE [Concomitant]

REACTIONS (2)
  - Tremor [None]
  - Dizziness [None]
